FAERS Safety Report 19281533 (Version 2)
Quarter: 2022Q1

REPORT INFORMATION
  Report Type: Report from Study
  Country: US (occurrence: US)
  Receive Date: 20210520
  Receipt Date: 20220207
  Transmission Date: 20220424
  Serious: Yes (Hospitalization, Other)
  Sender: FDA-Public Use
  Company Number: US-TAKEDA-US202027610

PATIENT
  Age: 60 Year
  Sex: Female
  Weight: 77.098 kg

DRUGS (26)
  1. LANADELUMAB [Suspect]
     Active Substance: LANADELUMAB
     Indication: Hereditary angioedema
     Dosage: 300 MILLIGRAM, Q2WEEKS
     Route: 058
  2. LANADELUMAB [Suspect]
     Active Substance: LANADELUMAB
     Indication: Immune system disorder
  3. CINRYZE [Suspect]
     Active Substance: HUMAN C1-ESTERASE INHIBITOR
     Indication: Immune system disorder
     Dosage: 2000 INTERNATIONAL UNIT
     Route: 042
     Dates: start: 20160815
  4. CINRYZE [Suspect]
     Active Substance: HUMAN C1-ESTERASE INHIBITOR
     Indication: Immune system disorder
     Dosage: 2000 INTERNATIONAL UNIT
     Route: 042
     Dates: start: 20160815
  5. CINRYZE [Suspect]
     Active Substance: HUMAN C1-ESTERASE INHIBITOR
     Indication: Immune system disorder
     Dosage: 2000 INTERNATIONAL UNIT
     Route: 042
     Dates: start: 20160815
  6. FIRAZYR [Concomitant]
     Active Substance: ICATIBANT ACETATE
     Indication: Product used for unknown indication
  7. FLONASE ALLERGY RELIEF [Concomitant]
     Active Substance: FLUTICASONE PROPIONATE
     Indication: Product used for unknown indication
  8. SODIUM CHLORIDE [Concomitant]
     Active Substance: SODIUM CHLORIDE
     Indication: Product used for unknown indication
  9. STERILE WATER [Concomitant]
     Active Substance: WATER
     Indication: Product used for unknown indication
  10. ALBUTEROL SULFATE [Concomitant]
     Active Substance: ALBUTEROL SULFATE
     Indication: Product used for unknown indication
  11. EPINEPHRINE [Concomitant]
     Active Substance: EPINEPHRINE
     Indication: Product used for unknown indication
  12. ASPIRIN [Concomitant]
     Active Substance: ASPIRIN
     Indication: Product used for unknown indication
  13. PULMICORT TURBUHALER [Concomitant]
     Active Substance: BUDESONIDE
     Indication: Product used for unknown indication
  14. ZYRTEC-D [Concomitant]
     Active Substance: CETIRIZINE HYDROCHLORIDE\PSEUDOEPHEDRINE HYDROCHLORIDE
     Indication: Product used for unknown indication
  15. LEXAPRO [Concomitant]
     Active Substance: ESCITALOPRAM OXALATE
     Indication: Product used for unknown indication
  16. BIOTIN [Concomitant]
     Active Substance: BIOTIN
     Indication: Product used for unknown indication
  17. BROVANA [Concomitant]
     Active Substance: ARFORMOTEROL TARTRATE
     Indication: Product used for unknown indication
  18. OMEPRAZOLE AND SODIUM BICARBONATE [Concomitant]
     Active Substance: OMEPRAZOLE\SODIUM BICARBONATE
     Indication: Product used for unknown indication
  19. MUCINEX [Concomitant]
     Active Substance: GUAIFENESIN
     Indication: Product used for unknown indication
  20. MONTELUKAST SODIUM [Concomitant]
     Active Substance: MONTELUKAST SODIUM
     Indication: Product used for unknown indication
  21. TRAMADOL [Concomitant]
     Active Substance: TRAMADOL
     Indication: Product used for unknown indication
  22. ATORVASTATIN [Concomitant]
     Active Substance: ATORVASTATIN
     Indication: Product used for unknown indication
  23. ONDANSETRON [Concomitant]
     Active Substance: ONDANSETRON
     Indication: Product used for unknown indication
  24. OMEPRAZOLE [Concomitant]
     Active Substance: OMEPRAZOLE
     Indication: Product used for unknown indication
  25. MECLIZINE [Concomitant]
     Active Substance: MECLIZINE HYDROCHLORIDE
     Indication: Product used for unknown indication
  26. CYANOCOBALAMIN [Concomitant]
     Active Substance: CYANOCOBALAMIN
     Indication: Product used for unknown indication

REACTIONS (4)
  - Chronic obstructive pulmonary disease [Unknown]
  - Biopsy [Unknown]
  - Hereditary angioedema [Unknown]
  - Prescribed overdose [Unknown]

NARRATIVE: CASE EVENT DATE: 20210517
